FAERS Safety Report 12925760 (Version 1)
Quarter: 2016Q4

REPORT INFORMATION
  Report Type: Spontaneous
  Country: US (occurrence: US)
  Receive Date: 20161109
  Receipt Date: 20161109
  Transmission Date: 20170207
  Serious: Yes (Other)
  Sender: FDA-Public Use
  Company Number: US-ABBVIE-16P-163-1768999-00

PATIENT
  Sex: Male

DRUGS (1)
  1. VENCLEXTA [Suspect]
     Active Substance: VENETOCLAX
     Indication: CHRONIC LYMPHOCYTIC LEUKAEMIA
     Route: 048

REACTIONS (5)
  - Neutropenia [Unknown]
  - Renal failure [Unknown]
  - Acute kidney injury [Unknown]
  - Blood uric acid increased [Unknown]
  - Blood lactate dehydrogenase increased [Unknown]

NARRATIVE: CASE EVENT DATE: 201610
